FAERS Safety Report 24264024 (Version 3)
Quarter: 2025Q3

REPORT INFORMATION
  Report Type: Spontaneous
  Country: CA (occurrence: CA)
  Receive Date: 20240829
  Receipt Date: 20250702
  Transmission Date: 20251021
  Serious: Yes (Other)
  Sender: PFIZER
  Company Number: CA-PFIZER INC-202400244910

PATIENT
  Age: 61 Year
  Sex: Female

DRUGS (5)
  1. RITUXIMAB [Suspect]
     Active Substance: RITUXIMAB
     Indication: Rheumatoid arthritis
     Dosage: 100 MG, 1X/DAY
     Route: 065
  2. RITUXIMAB [Suspect]
     Active Substance: RITUXIMAB
     Indication: Rheumatoid arthritis
  3. ACETAMINOPHEN [Concomitant]
     Active Substance: ACETAMINOPHEN
     Route: 065
  4. METHYLPREDNISOLONE [Concomitant]
     Active Substance: METHYLPREDNISOLONE
     Route: 042
  5. DIPHENHYDRAMINE [Concomitant]
     Active Substance: DIPHENHYDRAMINE
     Route: 042

REACTIONS (16)
  - Back pain [Unknown]
  - Renal pain [Unknown]
  - Eye disorder [Unknown]
  - Angina pectoris [Unknown]
  - Arrhythmia [Unknown]
  - Blood pressure increased [Unknown]
  - Chest discomfort [Unknown]
  - Coronary artery stenosis [Unknown]
  - Dyspnoea [Unknown]
  - Heart rate decreased [Unknown]
  - Heart rate irregular [Unknown]
  - Infusion site pain [Unknown]
  - Peripheral swelling [Unknown]
  - Rheumatoid arthritis [Unknown]
  - Treatment noncompliance [Unknown]
  - Off label use [Unknown]
